FAERS Safety Report 21757731 (Version 1)
Quarter: 2022Q4

REPORT INFORMATION
  Report Type: Spontaneous
  Country: US (occurrence: None)
  Receive Date: 20221221
  Receipt Date: 20221221
  Transmission Date: 20230113
  Serious: No
  Sender: FDA-Public Use
  Company Number: US-ROCHE-2778270

PATIENT
  Age: 60 Year
  Sex: Male
  Weight: 146 kg

DRUGS (1)
  1. ACTIVASE [Suspect]
     Active Substance: ALTEPLASE
     Indication: Cerebrovascular accident
     Dosage: 9MG BOLUS WITH 81MG FOLLOW UP DOSE
     Route: 042
     Dates: start: 20210106

REACTIONS (3)
  - Inappropriate schedule of product administration [Unknown]
  - No adverse event [Unknown]
  - Device issue [Unknown]

NARRATIVE: CASE EVENT DATE: 20210106
